FAERS Safety Report 6673678-X (Version None)
Quarter: 2010Q1

REPORT INFORMATION
  Report Type: 
  Country: None (occurrence: None)
  Receive Date: 20100329
  Receipt Date: 20090615
  Transmission Date: 20100710
  Serious: Yes (Other)
  Sender: FDA-Public Use
  Company Number: 2009230267

PATIENT
  Age: 39 Year
  Sex: Female
  Weight: 90.7 kg

DRUGS (1)
  1. GEODON [Suspect]
     Indication: BIPOLAR I DISORDER
     Dosage: 80 MG, 1X/DAY

REACTIONS (4)
  - DYSPHAGIA [None]
  - OEDEMA MOUTH [None]
  - SPEECH DISORDER [None]
  - UNEVALUABLE EVENT [None]
